FAERS Safety Report 19819541 (Version 1)
Quarter: 2021Q3

REPORT INFORMATION
  Report Type: Spontaneous
  Country: US (occurrence: US)
  Receive Date: 20210913
  Receipt Date: 20210913
  Transmission Date: 20211014
  Serious: No
  Sender: FDA-Public Use
  Company Number: US-BAUSCH-BL-2021-029442

PATIENT
  Sex: Male

DRUGS (2)
  1. ALREX [Suspect]
     Active Substance: LOTEPREDNOL ETABONATE
     Indication: OFF LABEL USE
  2. ALREX [Suspect]
     Active Substance: LOTEPREDNOL ETABONATE
     Indication: DRY EYE
     Dosage: AS NEEDED IN HIS LEFT EYE
     Route: 047
     Dates: start: 202107, end: 202107

REACTIONS (3)
  - Rash macular [Not Recovered/Not Resolved]
  - Off label use [Unknown]
  - Accidental exposure to product [Unknown]

NARRATIVE: CASE EVENT DATE: 202107
